FAERS Safety Report 8264169-3 (Version None)
Quarter: 2012Q2

REPORT INFORMATION
  Report Type: 
  Country: None (occurrence: None)
  Receive Date: 20120406
  Receipt Date: 20120323
  Transmission Date: 20120825
  Serious: Yes (Death, Hospitalization, Other)
  Sender: FDA-Public Use
  Company Number: GR-RANBAXY-2012R1-55220

PATIENT
  Age: 74 Year
  Sex: Male

DRUGS (8)
  1. VANCOMYCIN [Suspect]
     Indication: STAPHYLOCOCCAL BACTERAEMIA
  2. AZATHIOPRINE [Concomitant]
     Indication: AUTOIMMUNE HEPATITIS
     Dosage: UNK
     Route: 065
  3. VANCOMYCIN [Suspect]
     Indication: ANTIBIOTIC THERAPY
     Dosage: UNK
     Route: 065
  4. CORTISONE [Suspect]
     Indication: AUTOIMMUNE HEPATITIS
     Dosage: UNK
     Route: 065
  5. TIGECYCLINE [Suspect]
     Indication: ANTIBIOTIC THERAPY
     Dosage: UNK
     Route: 065
  6. GENTAMICIN [Suspect]
     Indication: ANTIBIOTIC THERAPY
     Dosage: UNK
     Route: 065
  7. CIPROFLOXACIN [Suspect]
     Indication: ANTIBIOTIC THERAPY
     Dosage: UNK
     Route: 065
  8. COLISTIN SULFATE [Suspect]
     Indication: ANTIBIOTIC THERAPY
     Dosage: UNK
     Route: 065

REACTIONS (16)
  - SEPTIC SHOCK [None]
  - PLATELET COUNT DECREASED [None]
  - STAPHYLOCOCCAL BACTERAEMIA [None]
  - HAEMATOCRIT DECREASED [None]
  - NO THERAPEUTIC RESPONSE [None]
  - LEUKOPENIA [None]
  - OPPORTUNISTIC INFECTION [None]
  - HYPONATRAEMIA [None]
  - KLEBSIELLA TEST POSITIVE [None]
  - TRICHOSPORON INFECTION [None]
  - MULTI-ORGAN DISORDER [None]
  - FUNGAEMIA [None]
  - ACINETOBACTER TEST POSITIVE [None]
  - DYSPNOEA [None]
  - HYPOXIA [None]
  - LUNG INFILTRATION [None]
